FAERS Safety Report 24367232 (Version 1)
Quarter: 2024Q3

REPORT INFORMATION
  Report Type: Spontaneous
  Country: CA (occurrence: CA)
  Receive Date: 20240926
  Receipt Date: 20240926
  Transmission Date: 20241016
  Serious: Yes (Death, Hospitalization)
  Sender: BAXTER
  Company Number: CA-BAXTER-2024BAX024913

PATIENT
  Age: 52 Year
  Sex: Male

DRUGS (29)
  1. CYCLOPHOSPHAMIDE [Suspect]
     Active Substance: CYCLOPHOSPHAMIDE
     Indication: Chronic lymphocytic leukaemia
     Dosage: UNK, DOSAGE FORM: NOT SPECIFIED
     Route: 042
  2. CYCLOPHOSPHAMIDE [Suspect]
     Active Substance: CYCLOPHOSPHAMIDE
     Indication: Product used for unknown indication
     Dosage: UNK, DOSAGE FORM: NOT SPECIFIED, BRAND NAME: PROCYTOX
     Route: 065
  3. DOXORUBICIN [Suspect]
     Active Substance: DOXORUBICIN
     Indication: Product used for unknown indication
     Dosage: UNK
     Route: 065
  4. DOXORUBICIN [Suspect]
     Active Substance: DOXORUBICIN
     Dosage: UNK, DOSAGE FORM: NOT SPECIFIED
     Route: 065
  5. AMLODIPINE BESYLATE [Suspect]
     Active Substance: AMLODIPINE BESYLATE
     Indication: Hypertension
     Dosage: 10.0 MILLIGRAM, 1 EVERY 1 DAYS
     Route: 065
  6. BENDAMUSTINE HYDROCHLORIDE [Suspect]
     Active Substance: BENDAMUSTINE HYDROCHLORIDE
     Indication: B-cell lymphoma
     Dosage: UNK
     Route: 042
  7. BESIFLOXACIN [Suspect]
     Active Substance: BESIFLOXACIN
     Indication: Product used for unknown indication
     Dosage: UNK
     Route: 065
  8. BETAXOLOL [Suspect]
     Active Substance: BETAXOLOL
     Indication: Product used for unknown indication
     Dosage: UNK, DOSAGE FORM: NOT SPECIFIED
     Route: 065
  9. BETAXOLOL [Suspect]
     Active Substance: BETAXOLOL
     Dosage: UNK
     Route: 065
  10. CHLORAMBUCIL [Suspect]
     Active Substance: CHLORAMBUCIL
     Indication: Chronic lymphocytic leukaemia
     Dosage: UNK DOSAGE FORM: NOT SPECIFED
     Route: 065
  11. CIALIS [Suspect]
     Active Substance: TADALAFIL
     Indication: Product used for unknown indication
     Dosage: UNK
     Route: 065
  12. EPINEPHRINE BITARTRATE [Suspect]
     Active Substance: EPINEPHRINE BITARTRATE
     Indication: Drug hypersensitivity
     Dosage: UNK
     Route: 030
  13. FLUDARABINE PHOSPHATE [Suspect]
     Active Substance: FLUDARABINE PHOSPHATE
     Indication: Chronic lymphocytic leukaemia
     Dosage: UNK
     Route: 042
  14. FLUDARABINE PHOSPHATE [Suspect]
     Active Substance: FLUDARABINE PHOSPHATE
     Dosage: UNK
     Route: 065
  15. MOMETASONE FUROATE [Suspect]
     Active Substance: MOMETASONE FUROATE
     Indication: Product used for unknown indication
     Dosage: 1.0 DOSAGE FORMS, 1 EVERY 1 DAYS, DOSAGE FORM: NOT SPECIFIED
     Route: 065
  16. MOXIFLOXACIN [Suspect]
     Active Substance: MOXIFLOXACIN
     Indication: Product used for unknown indication
     Dosage: UNK, DOSAGE FORM: NOT SPECIFIED
     Route: 065
  17. OBINUTUZUMAB [Suspect]
     Active Substance: OBINUTUZUMAB
     Indication: Chronic lymphocytic leukaemia
     Dosage: UNK
     Route: 042
  18. OBINUTUZUMAB [Suspect]
     Active Substance: OBINUTUZUMAB
     Dosage: UNK
     Route: 065
  19. OLOPATADINE [Suspect]
     Active Substance: OLOPATADINE
     Indication: Product used for unknown indication
     Dosage: UNK
     Route: 065
  20. OLOPATADINE [Suspect]
     Active Substance: OLOPATADINE
     Dosage: UNK, DOSAGE FORM: NOT SPECIFIED
     Route: 065
  21. EPIRUBICIN [Suspect]
     Active Substance: EPIRUBICIN
     Indication: Product used for unknown indication
     Dosage: UNK, PMS, DOSAGE FORM: SOLUTION INTRAVENOUS
     Route: 042
  22. EPIRUBICIN [Suspect]
     Active Substance: EPIRUBICIN
     Dosage: UNK, PMS
     Route: 065
  23. PREDNISOLONE [Suspect]
     Active Substance: PREDNISOLONE
     Indication: Product used for unknown indication
     Dosage: UNK, DOSAGE FORM: NOT SPECIFIED
     Route: 065
  24. PREDNISOLONE [Suspect]
     Active Substance: PREDNISOLONE
     Dosage: UNK
     Route: 065
  25. PREDNISONE [Suspect]
     Active Substance: PREDNISONE
     Indication: Product used for unknown indication
     Dosage: UNK, DOSAGE FORM: NOT SPECIFIED
     Route: 065
  26. PREDNISONE [Suspect]
     Active Substance: PREDNISONE
     Dosage: 50.0 GRAM
     Route: 065
  27. RITUXIMAB [Suspect]
     Active Substance: RITUXIMAB
     Indication: B-cell lymphoma
     Dosage: UNK
     Route: 042
  28. RITUXIMAB [Suspect]
     Active Substance: RITUXIMAB
     Dosage: UNK, DOSAGE FORM: CONCENTRATE FOR SOLUTION FOR INFUSION
     Route: 065
  29. VINCRISTINE [Suspect]
     Active Substance: VINCRISTINE
     Indication: Product used for unknown indication
     Dosage: UNK
     Route: 065

REACTIONS (2)
  - Cardiac disorder [Fatal]
  - Hypersensitivity [Fatal]
